FAERS Safety Report 5301836-5 (Version None)
Quarter: 2007Q2

REPORT INFORMATION
  Report Type: 
  Country: None (occurrence: None)
  Receive Date: 20070416
  Receipt Date: 20070416
  Transmission Date: 20071010
  Serious: Yes (Hospitalization)
  Sender: FDA-Public Use
  Company Number: None

PATIENT
  Age: 39 Year
  Sex: Female
  Weight: 72.5755 kg

DRUGS (1)
  1. EFFEXOR [Suspect]
     Indication: DEPRESSION
     Dosage: 300MG DAILY PO
     Route: 048
     Dates: start: 20060501, end: 20070410

REACTIONS (1)
  - INFLUENZA LIKE ILLNESS [None]
